FAERS Safety Report 14936287 (Version 2)
Quarter: 2018Q2

REPORT INFORMATION
  Report Type: Report from Study
  Country: US (occurrence: US)
  Receive Date: 20180524
  Receipt Date: 20180627
  Transmission Date: 20180711
  Serious: No
  Sender: FDA-Public Use
  Company Number: US-AMGEN-USASL2018070013

PATIENT
  Age: 5 Year
  Sex: Female

DRUGS (1)
  1. ENBREL [Suspect]
     Active Substance: ETANERCEPT
     Indication: PSORIASIS
     Dosage: 13.6 MG, QWK
     Route: 065

REACTIONS (3)
  - Rash macular [Unknown]
  - Skin irritation [Unknown]
  - Psoriasis [Unknown]

NARRATIVE: CASE EVENT DATE: 201805
